FAERS Safety Report 7320908-7 (Version None)
Quarter: 2011Q1

REPORT INFORMATION
  Report Type: 
  Country: None (occurrence: None)
  Receive Date: 20110126
  Receipt Date: 20101223
  Transmission Date: 20110831
  Serious: Yes (Hospitalization)
  Sender: FDA-Public Use
  Company Number: A-US2010-43117

PATIENT
  Age: 64 Year
  Sex: Male
  Weight: 104.3 kg

DRUGS (16)
  1. TRACLEER [Concomitant]
  2. ALLOPURINOL [Concomitant]
  3. ONDANSETRON [Concomitant]
  4. SILDENAFIL CITRATE [Concomitant]
  5. ATORVASTATIN (ATORVASTATIN) [Concomitant]
  6. POTASSIUM CHLORIDE [Concomitant]
  7. ENALAPRIL MALEATE [Concomitant]
  8. EPOPROSTENOL SODIUM [Suspect]
     Indication: PULMONARY ARTERIAL HYPERTENSION
     Dosage: 16 NG/KG, PER MIN, INTRAVENOUS
     Route: 042
     Dates: start: 20100821
  9. FUROSEMIDE (FUROSEMIDE SODIUM) [Concomitant]
  10. DIPHENOXYLATE (DIPHENOXYLATE) [Concomitant]
  11. ASPIRIN [Concomitant]
  12. SERTRALIINE (SERTRALINE) [Concomitant]
  13. CLOPIDOGREL BISULFATE [Concomitant]
  14. METOLAZONE [Concomitant]
  15. HYDROCODONE BITARTRATE AND ACETAMINOPHEN (HYDROCODONE BITARTRATE, PARA [Concomitant]
  16. NAPROXEN SODIUM [Concomitant]

REACTIONS (4)
  - BLOOD CREATININE INCREASED [None]
  - NAUSEA [None]
  - DEHYDRATION [None]
  - DIARRHOEA HAEMORRHAGIC [None]
